FAERS Safety Report 6366080-1 (Version None)
Quarter: 2009Q3

REPORT INFORMATION
  Report Type: 
  Country: None (occurrence: None)
  Receive Date: 20090920
  Receipt Date: 20080812
  Transmission Date: 20100115
  Serious: No
  Sender: FDA-Public Use
  Company Number: US-BAUSCH-2008BL002907

PATIENT
  Sex: Female

DRUGS (9)
  1. PREDNISOLONE SODIUM PHOSPHATE [Suspect]
     Indication: POSTOPERATIVE CARE
     Route: 047
     Dates: start: 20080508, end: 20080514
  2. PREDNISOLONE SODIUM PHOSPHATE [Suspect]
     Indication: CATARACT OPERATION
     Route: 047
     Dates: start: 20080508, end: 20080514
  3. PREDNISOLONE SODIUM PHOSPHATE [Suspect]
     Route: 047
     Dates: start: 20080515, end: 20080521
  4. PREDNISOLONE SODIUM PHOSPHATE [Suspect]
     Route: 047
     Dates: start: 20080515, end: 20080521
  5. PREDNISOLONE SODIUM PHOSPHATE [Suspect]
     Route: 047
     Dates: start: 20080522, end: 20080623
  6. PREDNISOLONE SODIUM PHOSPHATE [Suspect]
     Route: 047
     Dates: start: 20080522, end: 20080623
  7. HYZAAR [Concomitant]
     Indication: HYPERTENSION
  8. ASPIRIN [Concomitant]
     Indication: MYOCARDIAL INFARCTION
  9. ATENOLOL [Concomitant]
     Indication: HYPERTENSION

REACTIONS (1)
  - PUNCTATE KERATITIS [None]
